FAERS Safety Report 16668997 (Version 1)
Quarter: 2019Q3

REPORT INFORMATION
  Report Type: Report from Study
  Country: DE (occurrence: DE)
  Receive Date: 20190805
  Receipt Date: 20190805
  Transmission Date: 20191004
  Serious: Yes (Other)
  Sender: FDA-Public Use
  Company Number: DE-JNJFOC-20190742038

PATIENT

DRUGS (3)
  1. SALINE                             /00075401/ [Concomitant]
     Active Substance: SODIUM CHLORIDE
     Dosage: RECEIVED INTRAPERITONEAL CHEMOPERFUSION INCLUDING DOXORUBICIN AND CISPLATIN INTO THE 5,000ML OF 0...
     Route: 033
  2. DOXIL [Suspect]
     Active Substance: DOXORUBICIN HYDROCHLORIDE
     Indication: PLEURAL MESOTHELIOMA MALIGNANT
     Dosage: RECEIVED INTRAPERITONEAL CHEMOPERFUSION INCLUDING DOXORUBICIN AND CISPLATIN INTO THE 5,000ML OF 0.9%
     Route: 033
  3. CISPLATIN. [Concomitant]
     Active Substance: CISPLATIN
     Indication: PLEURAL MESOTHELIOMA MALIGNANT
     Dosage: RECEIVED INTRAPERITONEAL CHEMOPERFUSION INCLUDING DOXORUBICIN AND CISPLATIN INTO THE 5,000ML OF 0.9%
     Route: 033

REACTIONS (4)
  - Off label use [Unknown]
  - Product use in unapproved indication [Unknown]
  - Incorrect route of product administration [Unknown]
  - Atrial fibrillation [Unknown]
